FAERS Safety Report 6619443-0 (Version None)
Quarter: 2010Q1

REPORT INFORMATION
  Report Type: 
  Country: None (occurrence: None)
  Receive Date: 20100309
  Receipt Date: 20100303
  Transmission Date: 20100710
  Serious: Yes (Other)
  Sender: FDA-Public Use
  Company Number: US-ASTRAZENECA-2008UW10018

PATIENT
  Age: 385 Month
  Sex: Female
  Weight: 93 kg

DRUGS (29)
  1. SEROQUEL [Suspect]
     Indication: BIPOLAR DISORDER
     Dosage: 600 MG TO 900 MG
     Route: 048
     Dates: start: 20011001, end: 20080301
  2. SEROQUEL [Suspect]
     Indication: MAJOR DEPRESSION
     Dosage: 600 MG TO 900 MG
     Route: 048
     Dates: start: 20011001, end: 20080301
  3. SEROQUEL [Suspect]
     Dosage: 25-400MG
     Route: 048
     Dates: start: 20020408
  4. SEROQUEL [Suspect]
     Dosage: 25-400MG
     Route: 048
     Dates: start: 20020408
  5. SEROQUEL [Suspect]
     Route: 048
     Dates: start: 20030501
  6. SEROQUEL [Suspect]
     Route: 048
     Dates: start: 20030501
  7. SEROQUEL [Suspect]
     Dosage: 25 MG DAILY AS NEEDED, 200 MG AT DAILY NIGHT
     Route: 048
     Dates: start: 20040801
  8. SEROQUEL [Suspect]
     Dosage: 25 MG DAILY AS NEEDED, 200 MG AT DAILY NIGHT
     Route: 048
     Dates: start: 20040801
  9. SEROQUEL [Suspect]
     Route: 048
     Dates: start: 20051101
  10. SEROQUEL [Suspect]
     Route: 048
     Dates: start: 20051101
  11. SEROQUEL [Suspect]
     Route: 048
     Dates: start: 20061004
  12. SEROQUEL [Suspect]
     Route: 048
     Dates: start: 20061004
  13. SEROQUEL [Suspect]
     Route: 048
  14. SEROQUEL [Suspect]
     Route: 048
  15. SEROQUEL [Suspect]
     Dosage: 300 MG 2 AT NIGHT
     Route: 048
  16. SEROQUEL [Suspect]
     Dosage: 300 MG 2 AT NIGHT
     Route: 048
  17. DESYREL [Concomitant]
  18. ZOLOFT [Concomitant]
  19. PROZAC [Concomitant]
     Dates: start: 20010701, end: 20080401
  20. PREDNISONE [Concomitant]
     Dates: start: 20060428
  21. XANAX [Concomitant]
     Indication: BIPOLAR DISORDER
     Dates: start: 20061004
  22. XANAX [Concomitant]
     Dates: start: 20080306
  23. AVELOX [Concomitant]
     Dates: start: 20061101
  24. WELLBUTRIN [Concomitant]
     Dosage: 300 MG TAB24,AAQD
     Dates: start: 20061201
  25. WELLBUTRIN [Concomitant]
     Dates: start: 20031210
  26. TRAZODONE HCL [Concomitant]
     Dates: start: 20061206
  27. TRAZODONE HCL [Concomitant]
     Dosage: 1-2 TABLETS AT NIGHT
  28. LEXAPRO [Concomitant]
     Dosage: 10 MG TWO TABLETS QAM
     Dates: start: 20031210
  29. GEODON [Concomitant]
     Dates: start: 20080306

REACTIONS (6)
  - DIABETES MELLITUS INADEQUATE CONTROL [None]
  - DRUG DEPENDENCE [None]
  - EAR PAIN [None]
  - GALLBLADDER DISORDER [None]
  - INFLUENZA [None]
  - NASOPHARYNGITIS [None]
